FAERS Safety Report 9837092 (Version 1)
Quarter: 2014Q1

REPORT INFORMATION
  Report Type: Spontaneous
  Country: CA (occurrence: CA)
  Receive Date: 20140123
  Receipt Date: 20140123
  Transmission Date: 20141002
  Serious: Yes (Hospitalization)
  Sender: FDA-Public Use
  Company Number: CA-ASTRAZENECA-2014SE03600

PATIENT
  Age: 84 Year
  Sex: Male
  Weight: 74.8 kg

DRUGS (14)
  1. CASODEX [Suspect]
     Route: 048
  2. CASODEX [Suspect]
     Route: 048
  3. LUPRON [Suspect]
     Route: 030
  4. EZETROL [Concomitant]
  5. GLYBURIDE [Concomitant]
  6. HYDROCHLOROTHIAZIDE [Concomitant]
  7. LANTUS [Concomitant]
     Route: 058
  8. METFORMIN [Concomitant]
  9. MULTIVITAMINE(S) [Concomitant]
  10. NIFEDIPINE [Concomitant]
  11. RAMIPRIL [Concomitant]
  12. ROSUVASTATIN [Concomitant]
  13. TAMSULOSIN [Concomitant]
  14. TYLENOL WITH CODEINE [Concomitant]

REACTIONS (13)
  - Back pain [Unknown]
  - CSF test abnormal [Unknown]
  - Gait disturbance [Unknown]
  - Metastases to bone [Unknown]
  - Muscular weakness [Unknown]
  - Musculoskeletal pain [Unknown]
  - Nerve compression [Unknown]
  - Pain [Unknown]
  - Malignant neoplasm progression [Unknown]
  - Tachypnoea [Unknown]
  - Urinary incontinence [Unknown]
  - Constipation [Unknown]
  - Drug ineffective [Unknown]
